FAERS Safety Report 19423513 (Version 1)
Quarter: 2021Q2

REPORT INFORMATION
  Report Type: Report from Study
  Country: CN (occurrence: CN)
  Receive Date: 20210616
  Receipt Date: 20210616
  Transmission Date: 20210717
  Serious: Yes (Death)
  Sender: FDA-Public Use
  Company Number: CN-GLAXOSMITHKLINE-CN2021APC129250

PATIENT
  Sex: Female

DRUGS (2)
  1. FLUTICASONE PROPIONATE+SALMETEROL XINAFOATE [Suspect]
     Active Substance: FLUTICASONE PROPIONATE\SALMETEROL XINAFOATE
     Indication: CHRONIC OBSTRUCTIVE PULMONARY DISEASE
     Dosage: 1 PUFF(S), BID 50UG/250UG IRREGULAR AND INTERMITTENT USE OF MEDICATION RECENTLY
     Route: 055
     Dates: start: 20190603, end: 20210301
  2. TIOTROPIUM BROMIDE [Suspect]
     Active Substance: TIOTROPIUM BROMIDE
     Indication: PRODUCT USED FOR UNKNOWN INDICATION
     Dosage: 1 PUFF(S), QD 18 UG IRREGULAR MEDICATION INRECENT TIMES(INTERMITTENTLY)
     Route: 055

REACTIONS (5)
  - Chronic obstructive pulmonary disease [Fatal]
  - Treatment noncompliance [Unknown]
  - Anger [Unknown]
  - Inappropriate schedule of product administration [Unknown]
  - Bronchospasm [Unknown]
